FAERS Safety Report 5188296-2 (Version None)
Quarter: 2006Q4

REPORT INFORMATION
  Report Type: 
  Country: None (occurrence: None)
  Receive Date: 20061221
  Receipt Date: 20061218
  Transmission Date: 20070319
  Serious: Yes (Other)
  Sender: FDA-Public Use
  Company Number: JP-GLAXOSMITHKLINE-B0451458A

PATIENT
  Sex: Female

DRUGS (2)
  1. AMOXICILLIN [Suspect]
     Route: 065
  2. ACETAMINOPHEN [Suspect]
     Route: 065

REACTIONS (15)
  - BLOOD ALKALINE PHOSPHATASE INCREASED [None]
  - BLOOD BILIRUBIN INCREASED [None]
  - CHOLESTASIS [None]
  - ERYTHEMA MULTIFORME [None]
  - HEPATOMEGALY [None]
  - HYPERSENSITIVITY [None]
  - JAUNDICE [None]
  - PRURITUS [None]
  - PURPURA [None]
  - PYREXIA [None]
  - RASH [None]
  - RASH PAPULAR [None]
  - SKIN EXFOLIATION [None]
  - VANISHING BILE DUCT SYNDROME [None]
  - VIRAL INFECTION [None]
